FAERS Safety Report 6827343-6 (Version None)
Quarter: 2010Q3

REPORT INFORMATION
  Report Type: 
  Country: None (occurrence: None)
  Receive Date: 20100709
  Receipt Date: 20070110
  Transmission Date: 20110219
  Serious: No
  Sender: FDA-Public Use
  Company Number: US-PFIZER INC-2007003928

PATIENT
  Sex: Male
  Weight: 70.31 kg

DRUGS (4)
  1. CHANTIX [Suspect]
     Indication: SMOKING CESSATION THERAPY
     Dates: start: 20061020
  2. PLETAL [Suspect]
     Indication: ANGIOPATHY
     Dates: start: 20060101, end: 20061201
  3. VALSARTAN [Concomitant]
  4. VYTORIN [Concomitant]

REACTIONS (6)
  - CONSTIPATION [None]
  - DIARRHOEA [None]
  - DYSURIA [None]
  - GASTRIC DISORDER [None]
  - PERIPHERAL ARTERIAL OCCLUSIVE DISEASE [None]
  - POLLAKIURIA [None]
